FAERS Safety Report 8683716 (Version 2)
Quarter: 2012Q4

REPORT INFORMATION
  Report Type: 
  Country: CR (occurrence: CR)
  Receive Date: 20120726
  Receipt Date: 20121008
  Transmission Date: 20130627
  Serious: Yes (Other)
  Sender: FDA-Public Use
  Company Number: PHHY2012CR063802

PATIENT
  Age: 34 Year
  Sex: Female

DRUGS (4)
  1. FORADIL [Suspect]
     Indication: ASTHMA
     Dosage: 12 ug, BID
     Dates: start: 201104, end: 201110
  2. MIFLONIDE [Suspect]
     Indication: ASTHMA
     Dosage: 200 ug, BID
     Dates: start: 201104, end: 201110
  3. RHINOCORT [Concomitant]
  4. NASONEX [Concomitant]
     Dosage: UNK UKN, UNK

REACTIONS (2)
  - Procedural pain [Recovered/Resolved]
  - Exposure during pregnancy [Unknown]
